FAERS Safety Report 6974509-0 (Version None)
Quarter: 2010Q3

REPORT INFORMATION
  Report Type: 
  Country: None (occurrence: None)
  Receive Date: 20100909
  Receipt Date: 20081125
  Transmission Date: 20110219
  Serious: No
  Sender: FDA-Public Use
  Company Number: US-WYE-H06093608

PATIENT
  Age: 54 Year
  Sex: Female
  Weight: 63.56 kg

DRUGS (2)
  1. LYBREL [Suspect]
     Indication: CONTRACEPTION
     Route: 048
     Dates: start: 20070901, end: 20081015
  2. VITAMINS [Concomitant]

REACTIONS (3)
  - EPHELIDES [None]
  - VISUAL ACUITY REDUCED [None]
  - WEIGHT INCREASED [None]
